FAERS Safety Report 14813969 (Version 2)
Quarter: 2018Q4

REPORT INFORMATION
  Report Type: Spontaneous
  Country: FR (occurrence: FR)
  Receive Date: 20180426
  Receipt Date: 20181025
  Transmission Date: 20190204
  Serious: Yes (Other)
  Sender: FDA-Public Use
  Company Number: FR-MERCK KGAA-2046584

PATIENT
  Sex: Female

DRUGS (1)
  1. EUTHYROX [Suspect]
     Active Substance: LEVOTHYROXINE SODIUM
     Indication: PRODUCT USED FOR UNKNOWN INDICATION

REACTIONS (19)
  - Hot flush [None]
  - Weight increased [None]
  - Arrhythmia [None]
  - Fatigue [None]
  - Migraine [None]
  - Impaired driving ability [None]
  - Social avoidant behaviour [None]
  - Alopecia [None]
  - Diarrhoea [None]
  - Cardiac dysfunction [None]
  - Depression [None]
  - Respiratory disorder [None]
  - Gastrointestinal disorder [None]
  - Tinnitus [None]
  - Vertigo [None]
  - Malaise [None]
  - Hyperhidrosis [None]
  - Pruritus [None]
  - Blood thyroid stimulating hormone decreased [Recovered/Resolved]

NARRATIVE: CASE EVENT DATE: 20170829
